FAERS Safety Report 7968344-4 (Version None)
Quarter: 2011Q4

REPORT INFORMATION
  Report Type: 
  Country: None (occurrence: None)
  Receive Date: 20111209
  Receipt Date: 20111202
  Transmission Date: 20120403
  Serious: Yes (Death, Life-Threatening, Hospitalization)
  Sender: FDA-Public Use
  Company Number: US-CUBIST-2011S1000875

PATIENT
  Age: 80 Year
  Sex: Male

DRUGS (1)
  1. CUBICIN [Suspect]
     Indication: OSTEOMYELITIS
     Dates: start: 20110302, end: 20110316

REACTIONS (2)
  - HYPOGLYCAEMIA [None]
  - DEATH [None]
